FAERS Safety Report 6100665-2 (Version None)
Quarter: 2009Q1

REPORT INFORMATION
  Report Type: 
  Country: None (occurrence: None)
  Receive Date: 20090303
  Receipt Date: 20090220
  Transmission Date: 20090719
  Serious: Yes (Hospitalization)
  Sender: FDA-Public Use
  Company Number: AU-NOVOPROD-283440

PATIENT
  Age: 72 Year
  Sex: Female
  Weight: 90 kg

DRUGS (2)
  1. MIXTARD HUMAN 70/30 [Suspect]
     Indication: INSULIN-REQUIRING TYPE 2 DIABETES MELLITUS
     Dosage: 40 IU, BID
     Route: 058
     Dates: start: 19920101
  2. CORTISONE [Concomitant]
     Indication: ASTHMA
     Dosage: UNK, PRN

REACTIONS (2)
  - BLOOD GLUCOSE INCREASED [None]
  - INTERVERTEBRAL DISC DISORDER [None]
